FAERS Safety Report 21848981 (Version 2)
Quarter: 2023Q1

REPORT INFORMATION
  Report Type: Spontaneous
  Country: CA (occurrence: CA)
  Receive Date: 20230111
  Receipt Date: 20230124
  Transmission Date: 20230418
  Serious: Yes (Other)
  Sender: FDA-Public Use
  Company Number: CA-PFIZER INC-PV202300004543

PATIENT
  Age: 58 Year
  Sex: Female

DRUGS (11)
  1. SULFASALAZINE [Suspect]
     Active Substance: SULFASALAZINE
     Dosage: 1000 MG, 3X/DAY (500 MG 2 TABLETS 3 TIMES DAILY)
  2. BETAHISTINE HYDROCHLORIDE [Concomitant]
     Active Substance: BETAHISTINE HYDROCHLORIDE
     Dosage: 16 MG, 3X/DAY
  3. HYDROCHLOROTHIAZIDE [Concomitant]
     Active Substance: HYDROCHLOROTHIAZIDE
     Dosage: 25 MG, DAILY
  4. METHOTREXATE [Concomitant]
     Active Substance: METHOTREXATE
     Dosage: 15 MG, INITIATE
  5. NAPROXEN [Concomitant]
     Active Substance: NAPROXEN
     Dosage: 220 MG, 3 DAYS A WEEK
     Route: 048
  6. MESALAMINE [Concomitant]
     Active Substance: MESALAMINE
     Dosage: 1 G, 3X/DAY
  7. XIIDRA [Concomitant]
     Active Substance: LIFITEGRAST
     Dosage: UNK, AS NEEDED
  8. METOPROLOL [Concomitant]
     Active Substance: METOPROLOL
     Dosage: 25 MG HALF A TABLET 2 TIMES DAILY
  9. CRESTOR [Concomitant]
     Active Substance: ROSUVASTATIN CALCIUM
     Dosage: 10 MG, DAILY
  10. PREDNISONE [Concomitant]
     Active Substance: PREDNISONE
     Dosage: UNK
     Route: 048
  11. PREDNISONE [Concomitant]
     Active Substance: PREDNISONE
     Dosage: UNK
     Route: 042

REACTIONS (7)
  - Hypertension [Unknown]
  - Condition aggravated [Unknown]
  - Arthralgia [Unknown]
  - Musculoskeletal stiffness [Unknown]
  - Arthritis enteropathic [Unknown]
  - Osteoarthritis [Unknown]
  - Rotator cuff syndrome [Unknown]

NARRATIVE: CASE EVENT DATE: 20230109
